FAERS Safety Report 4449778-1 (Version None)
Quarter: 2004Q3

REPORT INFORMATION
  Report Type: 
  Country: None (occurrence: None)
  Receive Date: 20040914
  Receipt Date: 20040831
  Transmission Date: 20050211
  Serious: Yes (Disabling)
  Sender: FDA-Public Use
  Company Number: 2004GB02085

PATIENT
  Age: 82 Year
  Sex: Male

DRUGS (3)
  1. CRESTOR [Suspect]
     Indication: BLOOD CHOLESTEROL INCREASED
     Dosage: 10 MG PO
     Route: 048
     Dates: start: 20040423, end: 20040426
  2. NIFEDIPINE [Concomitant]
  3. ASPIRIN [Concomitant]

REACTIONS (3)
  - BLISTER [None]
  - MYALGIA [None]
  - MYOSITIS [None]
